FAERS Safety Report 22599503 (Version 1)
Quarter: 2023Q2

REPORT INFORMATION
  Report Type: Spontaneous
  Country: US (occurrence: US)
  Receive Date: 20230614
  Receipt Date: 20230614
  Transmission Date: 20230722
  Serious: Yes (Hospitalization)
  Sender: FDA-Public Use
  Company Number: US-BRISTOL-MYERS SQUIBB COMPANY-2023-079696

PATIENT
  Age: 57 Year
  Sex: Female
  Weight: 54.43 kg

DRUGS (7)
  1. NULOJIX [Suspect]
     Active Substance: BELATACEPT
     Indication: Renal transplant
     Dosage: DOSE : UNKNOWN (POSSIBLY 250 MG);     FREQ : EVERY SIX WEEKS
     Route: 042
     Dates: start: 201512, end: 2021
  2. NULOJIX [Suspect]
     Active Substance: BELATACEPT
     Dosage: DOSE : UNKNOWN (POSSIBLY 250 MG);     FREQ : EVERY SIX WEEKS
     Route: 042
     Dates: start: 2021
  3. PREDNISONE [Suspect]
     Active Substance: PREDNISONE
     Indication: Product used for unknown indication
  4. PREDNISONE [Suspect]
     Active Substance: PREDNISONE
  5. MYFORTIC [Concomitant]
     Active Substance: MYCOPHENOLATE SODIUM
     Indication: Renal transplant
  6. TRAZODONE [Concomitant]
     Active Substance: TRAZODONE HYDROCHLORIDE
     Indication: Sleep disorder
  7. RETINOL [Concomitant]
     Active Substance: RETINOL
     Indication: Product used for unknown indication

REACTIONS (10)
  - Pneumocystis jirovecii pneumonia [Unknown]
  - Klebsiella infection [Unknown]
  - Vision blurred [Unknown]
  - Dizziness [Unknown]
  - Fatigue [Unknown]
  - Brain fog [Unknown]
  - Arthralgia [Unknown]
  - Musculoskeletal stiffness [Unknown]
  - Osteopenia [Unknown]
  - Off label use [Unknown]
